FAERS Safety Report 14484627 (Version 1)
Quarter: 2018Q1

REPORT INFORMATION
  Report Type: Spontaneous
  Country: US (occurrence: US)
  Receive Date: 20180202
  Receipt Date: 20180202
  Transmission Date: 20180509
  Serious: No
  Sender: FDA-Public Use
  Company Number: None

PATIENT
  Age: 12 Year
  Sex: Male

DRUGS (1)
  1. NOVOSEVEN [Suspect]
     Active Substance: COAGULATION FACTOR VIIA RECOMBINANT HUMAN
     Indication: FACTOR VIII DEFICIENCY
     Dosage: FREQUENCY - INFUSE 3000 MCG SLOW IV EVERY 2 HOURS AS
     Route: 042
     Dates: start: 20180118

REACTIONS (1)
  - Rash [None]

NARRATIVE: CASE EVENT DATE: 20180118
